FAERS Safety Report 8292852-2 (Version None)
Quarter: 2012Q2

REPORT INFORMATION
  Report Type: 
  Country: None (occurrence: None)
  Receive Date: 20120417
  Receipt Date: 20110927
  Transmission Date: 20120825
  Serious: No
  Sender: FDA-Public Use
  Company Number: US-ASTRAZENECA-2010SE56631

PATIENT
  Age: 56 Year
  Sex: Female
  Weight: 77.1 kg

DRUGS (8)
  1. NEXIUM [Suspect]
     Indication: GASTROOESOPHAGEAL REFLUX DISEASE
     Route: 048
  2. CRESTOR [Suspect]
     Indication: BLOOD CHOLESTEROL INCREASED
     Route: 048
  3. PROZAC [Concomitant]
  4. NEUROTINE [Concomitant]
  5. NEXIUM [Suspect]
     Route: 048
  6. APLENEPINE [Concomitant]
  7. AMBIEN [Concomitant]
  8. CYCLOBENZOPINE [Concomitant]

REACTIONS (2)
  - DRUG PRESCRIBING ERROR [None]
  - MYALGIA [None]
